FAERS Safety Report 7352173-9 (Version None)
Quarter: 2011Q1

REPORT INFORMATION
  Report Type: 
  Country: None (occurrence: None)
  Receive Date: 20110315
  Receipt Date: 20110303
  Transmission Date: 20110831
  Serious: Yes (Other)
  Sender: FDA-Public Use
  Company Number: US-BAYER-2011-020110

PATIENT
  Sex: Female

DRUGS (2)
  1. MIRENA [Suspect]
     Indication: DYSMENORRHOEA
     Dosage: 20 ?G, CONT
     Route: 015
     Dates: start: 20110302, end: 20110302
  2. MIRENA [Suspect]
     Dosage: 20 ?G, CONT
     Route: 015
     Dates: start: 20110302, end: 20110302

REACTIONS (2)
  - PRESYNCOPE [None]
  - COMPLICATION OF DEVICE INSERTION [None]
